FAERS Safety Report 19907893 (Version 2)
Quarter: 2022Q1

REPORT INFORMATION
  Report Type: Spontaneous
  Country: ES (occurrence: ES)
  Receive Date: 20211001
  Receipt Date: 20220223
  Transmission Date: 20220424
  Serious: Yes (Hospitalization, Other)
  Sender: FDA-Public Use
  Company Number: ES-SA-2020SA032378

PATIENT
  Sex: Male
  Weight: 68 kg

DRUGS (13)
  1. OLMESARTAN MEDOXOMIL [Interacting]
     Active Substance: OLMESARTAN MEDOXOMIL
     Indication: Product used for unknown indication
     Dosage: UNK
     Route: 048
  2. FUROSEMIDE [Interacting]
     Active Substance: FUROSEMIDE
     Indication: Product used for unknown indication
     Dosage: UNK
     Route: 048
  3. LANREOTIDE ACETATE [Suspect]
     Active Substance: LANREOTIDE ACETATE
     Indication: Benign pancreatic neoplasm
     Dosage: UNK UNK, ONCE EVERY 1 MONTH
     Route: 065
  4. LANREOTIDE ACETATE [Suspect]
     Active Substance: LANREOTIDE ACETATE
     Indication: Hepatic neoplasm
  5. ASPIRIN [Interacting]
     Active Substance: ASPIRIN
     Indication: Product used for unknown indication
     Dosage: UNK
     Route: 048
  6. INSULIN GLARGINE [Interacting]
     Active Substance: INSULIN GLARGINE
     Indication: Type 2 diabetes mellitus
     Dosage: 28 IU
     Route: 058
     Dates: start: 20210803, end: 20210803
  7. INSULIN GLARGINE [Interacting]
     Active Substance: INSULIN GLARGINE
     Dosage: 30 IU
     Route: 058
     Dates: start: 20210804, end: 20210804
  8. INSULIN GLARGINE [Interacting]
     Active Substance: INSULIN GLARGINE
     Dosage: 32 IU
     Route: 058
     Dates: start: 20210805
  9. INSULIN GLARGINE [Interacting]
     Active Substance: INSULIN GLARGINE
     Dosage: 26 IU
     Route: 058
  10. REPAGLINIDE [Concomitant]
     Active Substance: REPAGLINIDE
     Indication: Type 2 diabetes mellitus
     Dosage: 1 DF, TID
     Route: 048
  11. LOSARTAN [Concomitant]
     Active Substance: LOSARTAN
     Indication: Product used for unknown indication
     Dosage: 50 MG
     Route: 048
  12. HUMALOG [Concomitant]
     Active Substance: INSULIN LISPRO
     Indication: Type 2 diabetes mellitus
     Dosage: UNK
     Route: 058
  13. HUMALOG [Concomitant]
     Active Substance: INSULIN LISPRO
     Indication: Diabetes mellitus inadequate control

REACTIONS (24)
  - Blood pressure abnormal [Unknown]
  - Blood disorder [Not Recovered/Not Resolved]
  - Diabetes mellitus inadequate control [Not Recovered/Not Resolved]
  - Hepatic cyst [Not Recovered/Not Resolved]
  - Weight increased [Unknown]
  - Blood glucose fluctuation [Unknown]
  - Nocturia [Unknown]
  - Abdominal distension [Not Recovered/Not Resolved]
  - Urine analysis abnormal [Unknown]
  - Condition aggravated [Not Recovered/Not Resolved]
  - Pancreatic cyst [Not Recovered/Not Resolved]
  - Cyanosis [Recovered/Resolved]
  - Visual impairment [Unknown]
  - Weight decreased [Unknown]
  - Fluid retention [Unknown]
  - Benign pancreatic neoplasm [Unknown]
  - Blood sodium decreased [Unknown]
  - Hepatic neoplasm [Unknown]
  - Hypoglycaemia [Recovered/Resolved]
  - Loss of consciousness [Recovered/Resolved]
  - Fatigue [Unknown]
  - Renal disorder [Not Recovered/Not Resolved]
  - Intentional product misuse [Unknown]
  - Labelled drug-drug interaction medication error [Recovered/Resolved]

NARRATIVE: CASE EVENT DATE: 20200130
